FAERS Safety Report 19658430 (Version 1)
Quarter: 2021Q3

REPORT INFORMATION
  Report Type: Spontaneous
  Country: US (occurrence: US)
  Receive Date: 20210804
  Receipt Date: 20210804
  Transmission Date: 20211014
  Serious: Yes (Death, Other)
  Sender: FDA-Public Use
  Company Number: US-ASTRAZENECA-2021A656573

PATIENT
  Sex: Female
  Weight: 53.5 kg

DRUGS (1)
  1. TAGRISSO [Suspect]
     Active Substance: OSIMERTINIB
     Indication: LUNG NEOPLASM MALIGNANT
     Route: 048

REACTIONS (5)
  - Constipation [Unknown]
  - Metastases to neck [Fatal]
  - Weight decreased [Unknown]
  - Brain neoplasm malignant [Unknown]
  - Metastases to spine [Fatal]
